FAERS Safety Report 9645629 (Version 1)
Quarter: 2013Q4

REPORT INFORMATION
  Report Type: Spontaneous
  Country: IE (occurrence: IE)
  Receive Date: 20131025
  Receipt Date: 20131025
  Transmission Date: 20140711
  Serious: Yes (Death)
  Sender: FDA-Public Use
  Company Number: IE-PFIZER INC-2013304340

PATIENT
  Age: 49 Year
  Sex: Male

DRUGS (3)
  1. EFEXOR XL [Suspect]
     Dosage: 2.25 ONCE DAILY
  2. LITHIUM [Suspect]
     Dosage: 1200 MG, 1X/DAY
  3. ZYPREXA [Suspect]
     Dosage: 5 MG, 1X/DAY

REACTIONS (1)
  - Toxicity to various agents [Fatal]
